FAERS Safety Report 18915318 (Version 1)
Quarter: 2021Q1

REPORT INFORMATION
  Report Type: Spontaneous
  Country: US (occurrence: US)
  Receive Date: 20210218
  Receipt Date: 20210218
  Transmission Date: 20210420
  Serious: No
  Sender: FDA-Public Use
  Company Number: None

PATIENT
  Sex: Female

DRUGS (1)
  1. LAPATINIB 250MG [Suspect]
     Active Substance: LAPATINIB
     Indication: BREAST CANCER FEMALE
     Route: 048
     Dates: start: 20201010

REACTIONS (3)
  - Gastric disorder [None]
  - Therapy interrupted [None]
  - Product substitution issue [None]
